FAERS Safety Report 17170105 (Version 1)
Quarter: 2019Q4

REPORT INFORMATION
  Report Type: Spontaneous
  Country: FR (occurrence: FR)
  Receive Date: 20191218
  Receipt Date: 20191218
  Transmission Date: 20200122
  Serious: Yes (Hospitalization)
  Sender: FDA-Public Use
  Company Number: NVSC2019FR066713

PATIENT
  Age: 75 Year
  Sex: Male
  Weight: 90 kg

DRUGS (2)
  1. REPAGLINIDE. [Concomitant]
     Active Substance: REPAGLINIDE
     Indication: TYPE 2 DIABETES MELLITUS
     Dosage: NON ADMINISTR?
     Route: 065
  2. RISPERIDONE. [Suspect]
     Active Substance: RISPERIDONE
     Indication: MEDICATION ERROR
     Dosage: 7 MG, QD
     Route: 048
     Dates: start: 20190912, end: 20190912

REACTIONS (3)
  - Bradykinesia [Recovered/Resolved]
  - Bradyphrenia [Recovered/Resolved]
  - Extrapyramidal disorder [Recovered/Resolved]

NARRATIVE: CASE EVENT DATE: 20190912
